FAERS Safety Report 9908080 (Version 1)
Quarter: 2014Q1

REPORT INFORMATION
  Report Type: Report from Study
  Country: FR (occurrence: FR)
  Receive Date: 20140219
  Receipt Date: 20140219
  Transmission Date: 20141002
  Serious: Yes (Other)
  Sender: FDA-Public Use
  Company Number: FR-ROCHE-1349956

PATIENT
  Age: 90 Year
  Sex: Female

DRUGS (2)
  1. RITUXIMAB [Suspect]
     Indication: ACQUIRED HAEMOPHILIA
     Route: 042
  2. PREDNISONE [Suspect]
     Indication: ACQUIRED HAEMOPHILIA
     Dosage: }15 MG/DAY
     Route: 065

REACTIONS (2)
  - Febrile neutropenia [Recovering/Resolving]
  - Off label use [Unknown]
